FAERS Safety Report 22154246 (Version 1)
Quarter: 2023Q1

REPORT INFORMATION
  Report Type: Spontaneous
  Country: US (occurrence: US)
  Receive Date: 20230330
  Receipt Date: 20230330
  Transmission Date: 20230417
  Serious: No
  Sender: FDA-Public Use
  Company Number: US-GBT-021188

PATIENT
  Sex: Male

DRUGS (1)
  1. OXBRYTA [Suspect]
     Active Substance: VOXELOTOR
     Indication: Sickle cell disease
     Dosage: UNKNOWN
     Route: 048
     Dates: start: 20221108

REACTIONS (3)
  - Haemoglobin abnormal [Unknown]
  - Therapy interrupted [Unknown]
  - Off label use [Unknown]
